FAERS Safety Report 4510235-5 (Version None)
Quarter: 2004Q4

REPORT INFORMATION
  Report Type: 
  Country: None (occurrence: None)
  Receive Date: 20041119
  Receipt Date: 20041110
  Transmission Date: 20050328
  Serious: Yes (Disabling, Other)
  Sender: FDA-Public Use
  Company Number: 2002-03-0352

PATIENT
  Age: 43 Year
  Sex: Male

DRUGS (1)
  1. INTRON A [Suspect]
     Indication: HEPATITIS C
     Dosage: 3 MU TIW
     Dates: start: 19990901, end: 19991201

REACTIONS (15)
  - BLINDNESS UNILATERAL [None]
  - CATARACT [None]
  - CHILLS [None]
  - DISCOMFORT [None]
  - DRUG INEFFECTIVE [None]
  - EYE INFLAMMATION [None]
  - GLAUCOMA [None]
  - HYPOAESTHESIA [None]
  - INFLUENZA LIKE ILLNESS [None]
  - IRIDOCYCLITIS [None]
  - MYOPIA [None]
  - PIGMENT DISPERSION SYNDROME [None]
  - PYREXIA [None]
  - UVEITIS [None]
  - VISION BLURRED [None]
